FAERS Safety Report 7318034-6 (Version None)
Quarter: 2011Q1

REPORT INFORMATION
  Report Type: 
  Country: None (occurrence: None)
  Receive Date: 20110228
  Receipt Date: 20110221
  Transmission Date: 20110831
  Serious: Yes (Other)
  Sender: FDA-Public Use
  Company Number: JP-AMGEN-JPNSP2011010027

PATIENT
  Age: 62 Year
  Sex: Male

DRUGS (5)
  1. URSO                               /00465701/ [Concomitant]
     Dosage: UNK
  2. MUCOSTA [Concomitant]
     Dosage: UNK
  3. ENBREL [Suspect]
     Indication: RHEUMATOID ARTHRITIS
     Dosage: UNK
     Route: 058
     Dates: start: 20080315, end: 20110113
  4. PREDNISOLONE [Concomitant]
     Dosage: UNK
  5. RHEUMATREX [Concomitant]
     Dosage: UNK

REACTIONS (3)
  - CONTUSION [None]
  - FALL [None]
  - ATYPICAL MYCOBACTERIAL INFECTION [None]
